FAERS Safety Report 15310871 (Version 2)
Quarter: 2018Q4

REPORT INFORMATION
  Report Type: Spontaneous
  Country: GB (occurrence: GB)
  Receive Date: 20180823
  Receipt Date: 20181119
  Transmission Date: 20190204
  Serious: Yes (Hospitalization)
  Sender: FDA-Public Use
  Company Number: GB-CLOVIS ONCOLOGY-CLO-2018-001098

PATIENT

DRUGS (1)
  1. RUBRACA [Suspect]
     Active Substance: RUCAPARIB CAMSYLATE
     Indication: PRODUCT USED FOR UNKNOWN INDICATION
     Dosage: 600 MG, UNK
     Dates: start: 20180726, end: 201808

REACTIONS (6)
  - Eye pain [Recovered/Resolved]
  - Nausea [Unknown]
  - Renal impairment [Recovered/Resolved]
  - Malignant neoplasm progression [Unknown]
  - Vomiting [Unknown]
  - Dehydration [Recovered/Resolved]
